FAERS Safety Report 15292615 (Version 3)
Quarter: 2018Q4

REPORT INFORMATION
  Report Type: Spontaneous
  Country: US (occurrence: US)
  Receive Date: 20180819
  Receipt Date: 20181015
  Transmission Date: 20190204
  Serious: No
  Sender: FDA-Public Use
  Company Number: US-JNJFOC-20180807887

PATIENT
  Age: 34 Year
  Sex: Male

DRUGS (1)
  1. RISPERDAL [Suspect]
     Active Substance: RISPERIDONE
     Indication: PRODUCT USED FOR UNKNOWN INDICATION
     Dosage: SUMMER OF 2015
     Route: 048
     Dates: start: 201506, end: 201511

REACTIONS (3)
  - Hyperhidrosis [Unknown]
  - Gynaecomastia [Not Recovered/Not Resolved]
  - Galactorrhoea [Recovered/Resolved]

NARRATIVE: CASE EVENT DATE: 201506
